FAERS Safety Report 9135162 (Version 1)
Quarter: 2013Q1

REPORT INFORMATION
  Report Type: Report from Study
  Country: JP (occurrence: JP)
  Receive Date: 20130304
  Receipt Date: 20130304
  Transmission Date: 20140127
  Serious: Yes (Other)
  Sender: FDA-Public Use
  Company Number: JP-ASTELLAS-2013JP002999

PATIENT
  Sex: Female
  Weight: 45 kg

DRUGS (25)
  1. TACROLIMUS CAPSULES [Suspect]
     Indication: LUPUS NEPHRITIS
     Dosage: 2 MG, UNKNOWN/D
     Route: 048
     Dates: start: 20080227
  2. TACROLIMUS CAPSULES [Suspect]
     Dosage: 1 MG, UNKNOWN/D
     Route: 048
     Dates: start: 20080220, end: 20080226
  3. PREDNISOLONE [Concomitant]
     Indication: LUPUS NEPHRITIS
     Dosage: 35 MG, UNKNOWN/D
     Route: 048
     Dates: end: 20080226
  4. PREDNISOLONE [Concomitant]
     Dosage: 30 MG, UNKNOWN/D
     Route: 048
     Dates: start: 20080227, end: 20080313
  5. PREDNISOLONE [Concomitant]
     Dosage: 27.5 MG, UNKNOWN/D
     Route: 048
     Dates: start: 20080314, end: 20080324
  6. PREDNISOLONE [Concomitant]
     Dosage: 25 MG, UNKNOWN/D
     Route: 048
     Dates: start: 20080325, end: 20080424
  7. PREDNISOLONE [Concomitant]
     Dosage: 20 MG, UNKNOWN/D
     Route: 048
     Dates: start: 20080425, end: 20080606
  8. PREDNISOLONE [Concomitant]
     Dosage: 19 MG, UNKNOWN/D
     Route: 048
     Dates: start: 20080607, end: 20080808
  9. PREDNISOLONE [Concomitant]
     Dosage: 18 MG, UNKNOWN/D
     Route: 048
     Dates: start: 20080809, end: 20081010
  10. PREDNISOLONE [Concomitant]
     Dosage: 17 MG, UNKNOWN/D
     Route: 048
     Dates: start: 20081011, end: 20081107
  11. PREDNISOLONE [Concomitant]
     Dosage: 16 MG, UNKNOWN/D
     Route: 048
     Dates: start: 20081108, end: 20090116
  12. PREDNISOLONE [Concomitant]
     Dosage: 15 MG, UNKNOWN/D
     Route: 048
     Dates: start: 20090117
  13. ACTONEL [Concomitant]
     Indication: PROPHYLAXIS
     Route: 048
  14. MEVALOTIN [Concomitant]
     Dosage: UNK
     Route: 048
     Dates: start: 20080228
  15. BAKTAR [Concomitant]
     Indication: PROPHYLAXIS
     Route: 048
  16. ALDOMET                            /00000103/ [Concomitant]
     Dosage: UNK
     Route: 048
  17. BLOPRESS [Concomitant]
     Dosage: UNK
     Route: 048
  18. PARIET [Concomitant]
     Route: 048
  19. JUVELA                             /00110502/ [Concomitant]
     Route: 048
  20. BAYASPIRIN [Concomitant]
     Indication: PROPHYLAXIS
     Route: 048
  21. BONALON [Concomitant]
     Indication: PROPHYLAXIS
     Dosage: UNK
     Route: 048
     Dates: start: 20080607
  22. BUFERIN [Concomitant]
     Indication: PROPHYLAXIS
     Dosage: UNK
     Route: 048
     Dates: start: 200807
  23. PL GRAN. [Concomitant]
     Indication: DIARRHOEA
     Dosage: 1 G, UNKNOWN/D
     Route: 048
     Dates: start: 20100313, end: 20100317
  24. MIYA-BM [Concomitant]
     Indication: DIARRHOEA
     Dosage: 20 MG, UNKNOWN/D
     Route: 048
     Dates: start: 20100313, end: 20100317
  25. PRIMPERAN [Concomitant]
     Indication: DIARRHOEA
     Dosage: 5 MG, UNKNOWN/D
     Route: 048
     Dates: start: 20100313, end: 20100317

REACTIONS (2)
  - Corneal erosion [Recovered/Resolved]
  - Diarrhoea [Recovered/Resolved]
